FAERS Safety Report 13879891 (Version 4)
Quarter: 2017Q4

REPORT INFORMATION
  Report Type: Spontaneous
  Country: IE (occurrence: IE)
  Receive Date: 20170818
  Receipt Date: 20171208
  Transmission Date: 20180320
  Serious: Yes (Other)
  Sender: FDA-Public Use
  Company Number: IE-AMGEN-IRLSP2017122688

PATIENT
  Age: 30 Year
  Sex: Male
  Weight: 69.2 kg

DRUGS (4)
  1. VENOFER [Concomitant]
     Active Substance: IRON SUCROSE
     Dosage: UNK
  2. ARANESP [Suspect]
     Active Substance: DARBEPOETIN ALFA
     Dosage: 200 MG (FORTNIGHTLY)
     Route: 042
  3. EPO [Concomitant]
     Active Substance: ERYTHROPOIETIN
     Dosage: UNK
  4. ARANESP [Suspect]
     Active Substance: DARBEPOETIN ALFA
     Indication: RENAL FAILURE
     Dosage: UNK
     Route: 065

REACTIONS (2)
  - Aplasia pure red cell [Unknown]
  - Therapy non-responder [Unknown]
